FAERS Safety Report 20790099 (Version 1)
Quarter: 2022Q2

REPORT INFORMATION
  Report Type: Spontaneous
  Country: US (occurrence: US)
  Receive Date: 20220505
  Receipt Date: 20220505
  Transmission Date: 20220721
  Serious: No
  Sender: FDA-Public Use
  Company Number: US-PFIZER INC-202200532585

PATIENT
  Age: 72 Year
  Sex: Female

DRUGS (1)
  1. EUCRISA [Suspect]
     Active Substance: CRISABOROLE
     Dosage: 1 G, 2X/DAY (APPLY 1 GRAM BID TO ARMS)
     Route: 061

REACTIONS (7)
  - Pruritus [Unknown]
  - Rash [Unknown]
  - Skin atrophy [Unknown]
  - Abdominal discomfort [Unknown]
  - Erythema [Unknown]
  - Dry skin [Unknown]
  - Visual impairment [Unknown]
